FAERS Safety Report 4529299-8 (Version None)
Quarter: 2004Q4

REPORT INFORMATION
  Report Type: 
  Country: None (occurrence: None)
  Receive Date: 20041202
  Receipt Date: 20040902
  Transmission Date: 20050328
  Serious: No
  Sender: FDA-Public Use
  Company Number: 200420444BWH

PATIENT
  Age: 40 Year
  Sex: Male
  Weight: 70.3075 kg

DRUGS (3)
  1. LEVITRA [Suspect]
     Indication: ERECTILE DYSFUNCTION
     Dosage: 10 MG, ONCE, ORAL
     Route: 048
     Dates: start: 20040901
  2. NEOSYNEPHRINE NASAL SPRAY (PHENYLEPHRINE HYDROCHLORIDE) [Suspect]
     Dosage: ONCE, NASAL
     Route: 045
     Dates: start: 20040902
  3. ZYRTEC [Concomitant]

REACTIONS (2)
  - NASAL CONGESTION [None]
  - SINUS PAIN [None]
